FAERS Safety Report 9836713 (Version 2)
Quarter: 2014Q2

REPORT INFORMATION
  Report Type: Spontaneous
  Country: US (occurrence: US)
  Receive Date: 20140123
  Receipt Date: 20140429
  Transmission Date: 20141212
  Serious: Yes (Other)
  Sender: FDA-Public Use
  Company Number: US-TEVA-457238USA

PATIENT
  Sex: Female

DRUGS (3)
  1. QVAR [Suspect]
     Indication: ASTHMA
     Route: 055
  2. AMOXICILLIN [Concomitant]
  3. BIAXIN [Concomitant]

REACTIONS (1)
  - Anaphylactic reaction [Recovered/Resolved with Sequelae]
